FAERS Safety Report 18163203 (Version 8)
Quarter: 2021Q2

REPORT INFORMATION
  Report Type: Spontaneous
  Country: CO (occurrence: CO)
  Receive Date: 20200818
  Receipt Date: 20210615
  Transmission Date: 20210717
  Serious: Yes (Hospitalization, Other)
  Sender: FDA-Public Use
  Company Number: CO-EMD SERONO-9180237

PATIENT
  Age: 42 Year
  Sex: Male
  Weight: 98 kg

DRUGS (10)
  1. VOTRIENT [Suspect]
     Active Substance: PAZOPANIB HYDROCHLORIDE
     Route: 048
  2. VOTRIENT [Suspect]
     Active Substance: PAZOPANIB HYDROCHLORIDE
     Dosage: DOSE RE INTRODUCED (UNSPECIFIED).
     Route: 048
     Dates: start: 20190805
  3. VOTRIENT [Suspect]
     Active Substance: PAZOPANIB HYDROCHLORIDE
     Dosage: (2 OF 400 MG/ 800 MG)
     Route: 048
     Dates: start: 20190528, end: 20190617
  4. VOTRIENT [Suspect]
     Active Substance: PAZOPANIB HYDROCHLORIDE
     Dosage: (2 OF 400 MG/ 800 MG)
     Route: 048
     Dates: start: 20190618, end: 20190619
  5. VOTRIENT [Suspect]
     Active Substance: PAZOPANIB HYDROCHLORIDE
     Indication: METASTATIC RENAL CELL CARCINOMA
     Dosage: (2 OF 400 MG/ 800 MG)
     Route: 048
     Dates: start: 20190301, end: 20190330
  6. LOSARTAN. [Concomitant]
     Active Substance: LOSARTAN
     Indication: HYPERTENSION
     Route: 065
     Dates: start: 20170202
  7. METFORMIN [Suspect]
     Active Substance: METFORMIN HYDROCHLORIDE
     Indication: DIABETES MELLITUS
     Route: 065
     Dates: start: 20170202
  8. VOTRIENT [Suspect]
     Active Substance: PAZOPANIB HYDROCHLORIDE
     Route: 048
  9. AMLODIPINE [Concomitant]
     Active Substance: AMLODIPINE BESYLATE
     Indication: PROPHYLAXIS
     Route: 065
     Dates: start: 20170202
  10. TRAJENTA [Concomitant]
     Active Substance: LINAGLIPTIN
     Indication: DIABETES MELLITUS
     Dates: start: 20170701

REACTIONS (27)
  - Skin exfoliation [Unknown]
  - Skin atrophy [Unknown]
  - Blister [Unknown]
  - Haemorrhage [Unknown]
  - Dry skin [Unknown]
  - Tooth injury [Recovered/Resolved]
  - Pyrexia [Unknown]
  - Abdominal pain upper [Unknown]
  - Skin depigmentation [Unknown]
  - Hyperkeratosis [Unknown]
  - Skin haemorrhage [Unknown]
  - Diarrhoea [Unknown]
  - Impaired healing [Unknown]
  - Carbuncle [Unknown]
  - Gastritis [Unknown]
  - COVID-19 [Unknown]
  - Headache [Unknown]
  - Nausea [Unknown]
  - Subcutaneous abscess [Unknown]
  - Burning sensation [Unknown]
  - Furuncle [Unknown]
  - Flatulence [Unknown]
  - Cyst [Unknown]
  - Abscess oral [Recovered/Resolved]
  - Blood triglycerides increased [Unknown]
  - Pain [Unknown]
  - Abdominal pain [Unknown]

NARRATIVE: CASE EVENT DATE: 2019
